FAERS Safety Report 7396311-0 (Version None)
Quarter: 2011Q2

REPORT INFORMATION
  Report Type: 
  Country: None (occurrence: None)
  Receive Date: 20110406
  Receipt Date: 20110401
  Transmission Date: 20111010
  Serious: Yes (Hospitalization)
  Sender: FDA-Public Use
  Company Number: IT-SHIRE-SPV1-2011-00351

PATIENT
  Sex: Female

DRUGS (2)
  1. XAGRID [Suspect]
     Indication: THROMBOCYTOSIS
     Dosage: 1.5 MG DAILY
     Route: 048
     Dates: start: 20070503, end: 20110330
  2. ASPIRIN [Concomitant]
     Indication: PRODUCT USED FOR UNKNOWN INDICATION
     Dosage: 100 MG, 1X/DAY:QD
     Route: 065
     Dates: start: 20070503, end: 20110330

REACTIONS (1)
  - CORONARY ARTERY DISEASE [None]
